FAERS Safety Report 24875776 (Version 1)
Quarter: 2025Q1

REPORT INFORMATION
  Report Type: Spontaneous
  Country: US (occurrence: US)
  Receive Date: 20250122
  Receipt Date: 20250122
  Transmission Date: 20250409
  Serious: No
  Sender: APOTEX
  Company Number: US-APOTEX-2025AP000955

PATIENT
  Sex: Female

DRUGS (1)
  1. IMATINIB [Suspect]
     Active Substance: IMATINIB
     Indication: Leukaemia
     Route: 065
     Dates: end: 202501

REACTIONS (4)
  - Illness [Unknown]
  - Sleep disorder [Unknown]
  - Product colour issue [Unknown]
  - Diarrhoea [Unknown]
